FAERS Safety Report 11119430 (Version 2)
Quarter: 2015Q3

REPORT INFORMATION
  Report Type: Report from Study
  Country: UY (occurrence: UY)
  Receive Date: 20150518
  Receipt Date: 20150805
  Transmission Date: 20151125
  Serious: Yes (Hospitalization)
  Sender: FDA-Public Use
  Company Number: UY-ABBVIE-15P-168-1389483-00

PATIENT
  Age: 56 Year
  Sex: Male

DRUGS (1)
  1. ZEMPLAR [Suspect]
     Active Substance: PARICALCITOL
     Indication: HYPERPARATHYROIDISM SECONDARY
     Route: 042
     Dates: start: 20141212

REACTIONS (1)
  - Intracardiac thrombus [Recovering/Resolving]

NARRATIVE: CASE EVENT DATE: 20150508
